FAERS Safety Report 7957245-3 (Version None)
Quarter: 2011Q4

REPORT INFORMATION
  Report Type: 
  Country: None (occurrence: None)
  Receive Date: 20111205
  Receipt Date: 20111202
  Transmission Date: 20120403
  Serious: Yes (Hospitalization)
  Sender: FDA-Public Use
  Company Number: IT-SANOFI-AVENTIS-2011SA072202

PATIENT
  Age: 82 Year
  Sex: Female

DRUGS (6)
  1. COUMADIN [Concomitant]
     Indication: ATRIAL FIBRILLATION
     Route: 048
  2. LEVOPRAID [Concomitant]
     Route: 065
  3. ALDACTONE [Suspect]
     Indication: HYPERTENSION
     Route: 048
     Dates: start: 20100423, end: 20110423
  4. LEVOTHYROXINE SODIUM [Concomitant]
     Indication: HYPOTHYROIDISM
     Route: 048
  5. RAMIPRIL [Suspect]
     Indication: HYPERTENSION
     Route: 048
     Dates: start: 20080423
  6. LASIX [Suspect]
     Indication: HYPERTENSION
     Route: 048
     Dates: start: 20080423

REACTIONS (3)
  - ORTHOSTATIC HYPOTENSION [None]
  - SYNCOPE [None]
  - FALL [None]
